FAERS Safety Report 17173184 (Version 1)
Quarter: 2019Q4

REPORT INFORMATION
  Report Type: Spontaneous
  Country: US (occurrence: US)
  Receive Date: 20191219
  Receipt Date: 20191219
  Transmission Date: 20200122
  Serious: Yes (Other)
  Sender: FDA-Public Use
  Company Number: US-ROCHE-2497481

PATIENT
  Sex: Male

DRUGS (1)
  1. OCREVUS [Suspect]
     Active Substance: OCRELIZUMAB
     Indication: MULTIPLE SCLEROSIS
     Dosage: IN JAN/2019, RECEIVED HER LAST INFUSION
     Route: 065

REACTIONS (3)
  - Lymphopenia [Unknown]
  - Therapeutic response shortened [Unknown]
  - Multiple sclerosis relapse [Unknown]
